FAERS Safety Report 7544901-4 (Version None)
Quarter: 2011Q2

REPORT INFORMATION
  Report Type: 
  Country: None (occurrence: None)
  Receive Date: 20110614
  Receipt Date: 20110118
  Transmission Date: 20111010
  Serious: Yes (Life-Threatening, Hospitalization, Other)
  Sender: FDA-Public Use
  Company Number: US-BAYER-201016614NA

PATIENT
  Age: 27 Year
  Sex: Female
  Weight: 127 kg

DRUGS (15)
  1. PROTONIX [Concomitant]
  2. ALBUTEROL [Concomitant]
     Dosage: UNK
     Dates: start: 20080101
  3. NYQUIL [Concomitant]
     Indication: COUGH
     Dosage: UNK
     Dates: start: 20071215, end: 20071217
  4. FERROUS SULFATE TAB [Concomitant]
     Dosage: UNK
     Dates: start: 20100101
  5. BUSPAR [Concomitant]
     Dosage: 10 MG, UNK
     Route: 048
  6. SPIRIVA [Concomitant]
     Dosage: UNK
     Dates: start: 20080101, end: 20080401
  7. PREDNISONE [Concomitant]
  8. YAZ [Suspect]
     Indication: ORAL CONTRACEPTION
     Route: 048
     Dates: start: 20071001, end: 20071201
  9. YASMIN [Suspect]
     Indication: ORAL CONTRACEPTION
     Route: 048
     Dates: start: 20071001, end: 20071201
  10. PREVACID [Concomitant]
     Dosage: UNK
     Dates: start: 20080101
  11. ALBUTEROL SULFATE AUTOHALER [Concomitant]
  12. CITALOPRAM HYDROBROMIDE [Concomitant]
     Dosage: UNK
     Dates: start: 20080201
  13. COUMADIN [Concomitant]
     Indication: PULMONARY EMBOLISM
  14. BUSPIRONE HCL [Concomitant]
     Dosage: UNK
     Dates: start: 20080201
  15. OMNIPAQUE 140 [Concomitant]
     Indication: UNEVALUABLE EVENT
     Dosage: UNK
     Route: 042
     Dates: start: 20070218, end: 20070218

REACTIONS (7)
  - PNEUMONIA [None]
  - DEPRESSION [None]
  - PULMONARY EMBOLISM [None]
  - ANXIETY [None]
  - TRACHEAL STENOSIS [None]
  - RENAL FAILURE [None]
  - RESPIRATORY FAILURE [None]
